FAERS Safety Report 6609776-6 (Version None)
Quarter: 2010Q1

REPORT INFORMATION
  Report Type: 
  Country: None (occurrence: None)
  Receive Date: 20100216
  Receipt Date: 20090914
  Transmission Date: 20100710
  Serious: Yes (Hospitalization)
  Sender: FDA-Public Use
  Company Number: MC200700764

PATIENT
  Age: 60 Year
  Sex: Male
  Weight: 83 kg

DRUGS (18)
  1. ANGIOMAX [Suspect]
     Indication: STENT PLACEMENT
     Dosage: 12.75 ML, SINGLE, INTRAVENOUS; SEE IMAGE
     Route: 042
     Dates: start: 20070427, end: 20070427
  2. ANGIOMAX [Suspect]
     Indication: THROMBOSIS PROPHYLAXIS
     Dosage: 12.75 ML, SINGLE, INTRAVENOUS; SEE IMAGE
     Route: 042
     Dates: start: 20070427, end: 20070427
  3. ANGIOMAX [Suspect]
     Indication: STENT PLACEMENT
     Dosage: 12.75 ML, SINGLE, INTRAVENOUS; SEE IMAGE
     Route: 042
     Dates: start: 20070427, end: 20070427
  4. ANGIOMAX [Suspect]
     Indication: THROMBOSIS PROPHYLAXIS
     Dosage: 12.75 ML, SINGLE, INTRAVENOUS; SEE IMAGE
     Route: 042
     Dates: start: 20070427, end: 20070427
  5. CANGRELOR FOR INJECTION (CANGRELOR) INJECTION [Suspect]
     Dosage: 6.2 ML, BOLUS, INTRAVENOUS
     Route: 042
     Dates: start: 20070427, end: 20070427
  6. OMEPRAZOLE [Concomitant]
  7. . [Concomitant]
  8. NPH INSULIN [Concomitant]
  9. FENTANYL-100 [Concomitant]
  10. METHADONE HCL [Concomitant]
  11. LISINOPRIL [Concomitant]
  12. METOPROLOL (METOPROLOL) [Concomitant]
  13. ASPIRIN [Concomitant]
  14. NAPROXEN [Concomitant]
  15. HEPARIN [Concomitant]
  16. EZETIMIBE [Concomitant]
  17. INSULIN, REGULAR (INSULIN) [Concomitant]
  18. SIMVASTATIN [Concomitant]

REACTIONS (5)
  - ANXIETY [None]
  - CHEST DISCOMFORT [None]
  - DYSPNOEA [None]
  - FEELING ABNORMAL [None]
  - HYPERHIDROSIS [None]
